FAERS Safety Report 11743614 (Version 1)
Quarter: 2015Q4

REPORT INFORMATION
  Report Type: Spontaneous
  Country: JP (occurrence: JP)
  Receive Date: 20151116
  Receipt Date: 20151116
  Transmission Date: 20160304
  Serious: Yes (Other)
  Sender: FDA-Public Use
  Company Number: JP-GLAXOSMITHKLINE-JP2015JPN160864

PATIENT
  Age: 84 Year
  Sex: Male

DRUGS (4)
  1. CONSTAN [Concomitant]
     Active Substance: ALPRAZOLAM
     Dosage: 1 DF, TID
  2. PARLODEL [Concomitant]
     Active Substance: BROMOCRIPTINE MESYLATE
     Dosage: 3 DF, TID
  3. NEODOPASTON [Concomitant]
     Active Substance: CARBIDOPA\LEVODOPA
     Dosage: 3 DF, TID
  4. REQUIP [Suspect]
     Active Substance: ROPINIROLE HYDROCHLORIDE
     Indication: PARKINSON^S DISEASE
     Dosage: 1 MG, BID
     Route: 048

REACTIONS (3)
  - Pyrexia [Unknown]
  - Internal haemorrhage [Unknown]
  - Platelet count decreased [Not Recovered/Not Resolved]

NARRATIVE: CASE EVENT DATE: 201511
